FAERS Safety Report 23575927 (Version 2)
Quarter: 2024Q1

REPORT INFORMATION
  Report Type: Spontaneous
  Country: US (occurrence: US)
  Receive Date: 20240228
  Receipt Date: 20240229
  Transmission Date: 20240410
  Serious: Yes (Death)
  Sender: FDA-Public Use
  Company Number: US-PFIZER INC-PV202400000276

PATIENT
  Age: 71 Year
  Sex: Male

DRUGS (4)
  1. BRAFTOVI [Suspect]
     Active Substance: ENCORAFENIB
     Dosage: 6 CAPSULES DAILY
     Route: 048
  2. BRAFTOVI [Suspect]
     Active Substance: ENCORAFENIB
     Dosage: 75 MG
  3. MEKTOVI [Suspect]
     Active Substance: BINIMETINIB
     Dosage: 3 TABLETS 2 TIMES PER DAY
     Route: 048
  4. MEKTOVI [Suspect]
     Active Substance: BINIMETINIB
     Dosage: 15 MG

REACTIONS (1)
  - Death [Fatal]
